FAERS Safety Report 9660540 (Version 1)
Quarter: 2013Q4

REPORT INFORMATION
  Report Type: Spontaneous
  Country: NL (occurrence: NL)
  Receive Date: 20131031
  Receipt Date: 20131031
  Transmission Date: 20140711
  Serious: Yes (Hospitalization)
  Sender: FDA-Public Use
  Company Number: NL-BRISTOL-MYERS SQUIBB COMPANY-19627546

PATIENT
  Age: 63 Year
  Sex: Male

DRUGS (4)
  1. PRAVASTATIN SODIUM [Suspect]
     Dosage: 1DF:10MG TAB?PRAVASTATIN SODIUM 10 MG TABS
     Dates: start: 2008
  2. MESALAZINE [Suspect]
     Indication: COLITIS
     Dosage: MESALAZINE 1.2G TABLET ?2TABS
     Dates: start: 2010, end: 20130908
  3. FOSAVANCE [Concomitant]
     Dosage: 1DF:70MG/2800IE TABLET
  4. HYDROCHLOROTHIAZIDE [Concomitant]

REACTIONS (1)
  - Interstitial lung disease [Recovering/Resolving]
